FAERS Safety Report 7882505-4 (Version None)
Quarter: 2011Q4

REPORT INFORMATION
  Report Type: 
  Country: None (occurrence: None)
  Receive Date: 20111101
  Receipt Date: 20110615
  Transmission Date: 20120403
  Serious: No
  Sender: FDA-Public Use
  Company Number: US-AMGEN-USASP2011030708

PATIENT
  Sex: Female

DRUGS (7)
  1. METHOTREXATE [Concomitant]
     Dosage: 2.5 MG, UNK
  2. FOLIC ACID [Concomitant]
     Dosage: 5 MG, UNK
  3. VITAMIN D [Concomitant]
     Dosage: 4000 IU, UNK
  4. NABUMETONE [Concomitant]
     Dosage: 500 MG, UNK
  5. METOPROLOL TARTRATE [Concomitant]
     Dosage: 25 MG, UNK
  6. METFORMIN HCL [Concomitant]
     Dosage: 500 MG, UNK
  7. ENBREL [Suspect]
     Indication: PRODUCT USED FOR UNKNOWN INDICATION
     Dosage: 50 MG, QWK
     Route: 058

REACTIONS (2)
  - NASAL CONGESTION [None]
  - RASH [None]
